FAERS Safety Report 6860032-0 (Version None)
Quarter: 2010Q3

REPORT INFORMATION
  Report Type: 
  Country: None (occurrence: None)
  Receive Date: 20100720
  Receipt Date: 20100716
  Transmission Date: 20110219
  Serious: Yes (Death, Hospitalization, Other)
  Sender: FDA-Public Use
  Company Number: DE-SANOFI-AVENTIS-2010SA037332

PATIENT
  Age: 78 Year
  Sex: Male
  Weight: 69 kg

DRUGS (18)
  1. DOCETAXEL [Suspect]
     Indication: METASTATIC GASTRIC CANCER
     Route: 041
     Dates: start: 20100602, end: 20100602
  2. DOCETAXEL [Suspect]
     Route: 041
     Dates: start: 20100616, end: 20100616
  3. OXALIPLATIN [Suspect]
     Indication: METASTATIC GASTRIC CANCER
     Route: 041
     Dates: start: 20100602, end: 20100602
  4. OXALIPLATIN [Suspect]
     Route: 041
     Dates: start: 20100616, end: 20100616
  5. FLUOROURACIL [Suspect]
     Indication: METASTATIC GASTRIC CANCER
     Route: 041
     Dates: start: 20100602, end: 20100602
  6. FLUOROURACIL [Suspect]
     Route: 041
     Dates: start: 20100616, end: 20100616
  7. FOLINIC ACID [Suspect]
     Indication: METASTATIC GASTRIC CANCER
     Route: 041
     Dates: start: 20100602, end: 20100602
  8. FOLINIC ACID [Suspect]
     Route: 041
     Dates: start: 20100616, end: 20100616
  9. AMARYL [Concomitant]
     Indication: PRODUCT USED FOR UNKNOWN INDICATION
  10. LANTUS [Concomitant]
     Indication: PRODUCT USED FOR UNKNOWN INDICATION
  11. ACETYLSALICYLIC ACID [Concomitant]
     Indication: PRODUCT USED FOR UNKNOWN INDICATION
  12. CAPTOHEXAL [Concomitant]
     Indication: PRODUCT USED FOR UNKNOWN INDICATION
  13. AMIODARONE HCL [Concomitant]
     Indication: PRODUCT USED FOR UNKNOWN INDICATION
  14. MOLSIDOMINE [Concomitant]
     Indication: PRODUCT USED FOR UNKNOWN INDICATION
  15. XIPAMIDE [Concomitant]
     Indication: PRODUCT USED FOR UNKNOWN INDICATION
  16. TAMSULOSIN HCL [Concomitant]
     Indication: PRODUCT USED FOR UNKNOWN INDICATION
  17. FINASTERIDE [Concomitant]
     Indication: PRODUCT USED FOR UNKNOWN INDICATION
  18. TORSEMIDE [Concomitant]
     Indication: PRODUCT USED FOR UNKNOWN INDICATION
     Dates: start: 20100528

REACTIONS (3)
  - CARDIAC FAILURE [None]
  - RESPIRATORY FAILURE [None]
  - SEPSIS [None]
